FAERS Safety Report 5796388-X (Version None)
Quarter: 2008Q2

REPORT INFORMATION
  Report Type: 
  Country: None (occurrence: None)
  Receive Date: 20080630
  Receipt Date: 20080630
  Transmission Date: 20081010
  Serious: Yes (Other)
  Sender: FDA-Public Use
  Company Number: None

PATIENT
  Age: 84 Year
  Sex: Female
  Weight: 49.8957 kg

DRUGS (6)
  1. LEVAQUIN [Suspect]
     Indication: BRONCHIECTASIS
     Dosage: 10 TABS ONE A DAY PO
     Route: 048
     Dates: start: 20080514, end: 20080519
  2. LEVAQUIN [Suspect]
     Indication: CHRONIC OBSTRUCTIVE PULMONARY DISEASE
     Dosage: 10 TABS ONE A DAY PO
     Route: 048
     Dates: start: 20080514, end: 20080519
  3. CIPROFLOXACIN [Suspect]
     Indication: BRONCHIECTASIS
     Dosage: 28 TABS ONE TWICE A DAY PO
     Route: 048
     Dates: start: 20080523, end: 20080528
  4. CIPROFLOXACIN [Suspect]
     Indication: CHRONIC OBSTRUCTIVE PULMONARY DISEASE
     Dosage: 28 TABS ONE TWICE A DAY PO
     Route: 048
     Dates: start: 20080523, end: 20080528
  5. AVELOX [Concomitant]
  6. PREDNISOLONE [Concomitant]

REACTIONS (11)
  - FUNGAL INFECTION [None]
  - GAIT DISTURBANCE [None]
  - GINGIVAL PAIN [None]
  - GLOSSODYNIA [None]
  - INSOMNIA [None]
  - MALAISE [None]
  - ORAL DISORDER [None]
  - PAIN [None]
  - PAIN IN EXTREMITY [None]
  - TENDONITIS [None]
  - VIRAL INFECTION [None]
